FAERS Safety Report 22162125 (Version 1)
Quarter: 2023Q1

REPORT INFORMATION
  Report Type: Report from Study
  Country: IT (occurrence: IT)
  Receive Date: 20230331
  Receipt Date: 20230331
  Transmission Date: 20230417
  Serious: Yes (Other)
  Sender: FDA-Public Use
  Company Number: None

PATIENT
  Age: 76 Year
  Sex: Female

DRUGS (2)
  1. IBUPROFEN [Suspect]
     Active Substance: IBUPROFEN
     Indication: Bronchitis
     Dosage: 1 TABLET EVERY 8 HOURS
     Route: 048
     Dates: start: 20230217, end: 20230219
  2. CEFIXIME [Suspect]
     Active Substance: CEFIXIME
     Indication: Bronchitis
     Dosage: 1 TABLET A DAY FOR 5 DAYS
     Route: 048
     Dates: start: 20230217, end: 20230219

REACTIONS (1)
  - Urticaria [Recovered/Resolved]

NARRATIVE: CASE EVENT DATE: 20230217
